FAERS Safety Report 11897622 (Version 1)
Quarter: 2016Q1

REPORT INFORMATION
  Report Type: Spontaneous
  Country: FR (occurrence: FR)
  Receive Date: 20160108
  Receipt Date: 20160108
  Transmission Date: 20160526
  Serious: Yes (Hospitalization, Other)
  Sender: FDA-Public Use
  Company Number: FR-BRISTOL-MYERS SQUIBB COMPANY-11675972

PATIENT
  Age: 0 Day
  Sex: Male
  Weight: 2.81 kg

DRUGS (4)
  1. METHADONE CHLORHYDRATE [Concomitant]
     Active Substance: METHADONE HYDROCHLORIDE
     Indication: PRODUCT USED FOR UNKNOWN INDICATION
     Dosage: 1 MG, QD
     Route: 064
  2. RETROVIR [Suspect]
     Active Substance: ZIDOVUDINE
     Indication: PROPHYLAXIS
     Dosage: RETROVIR SYRUP
     Route: 048
     Dates: start: 20000117, end: 20000228
  3. VIDEX [Suspect]
     Active Substance: DIDANOSINE
     Indication: PRODUCT USED FOR UNKNOWN INDICATION
     Dosage: EXPOSURE FROM WEEK 18 OF GESTATION.
     Route: 064
     Dates: start: 19990923, end: 20000117
  4. RETROVIR [Suspect]
     Active Substance: ZIDOVUDINE
     Indication: PRODUCT USED FOR UNKNOWN INDICATION
     Dosage: UNK, QD
     Route: 064
     Dates: start: 19990923, end: 20000117

REACTIONS (6)
  - Strabismus [Unknown]
  - Macrocytosis [Recovered/Resolved]
  - Blood lactic acid increased [Recovered/Resolved with Sequelae]
  - Foetal exposure during pregnancy [Unknown]
  - Neutropenia [Recovered/Resolved with Sequelae]
  - Blood creatine phosphokinase increased [Recovered/Resolved with Sequelae]

NARRATIVE: CASE EVENT DATE: 20000117
